FAERS Safety Report 20792268 (Version 1)
Quarter: 2022Q2

REPORT INFORMATION
  Report Type: Spontaneous
  Country: PG (occurrence: PG)
  Receive Date: 20220505
  Receipt Date: 20220505
  Transmission Date: 20220721
  Serious: Yes (Death)
  Sender: FDA-Public Use
  Company Number: PG-JNJFOC-20220502666

PATIENT
  Age: 31 Year
  Sex: Female
  Weight: 35 kg

DRUGS (6)
  1. BEDAQUILINE [Suspect]
     Active Substance: BEDAQUILINE
     Indication: Tuberculosis
     Dosage: DOSE: 400
     Route: 048
     Dates: start: 20211210, end: 20211223
  2. BEDAQUILINE [Suspect]
     Active Substance: BEDAQUILINE
     Dosage: DOSE: 200, 3 DAYS A WEEK
     Route: 048
     Dates: start: 20211224
  3. LEVOFLOXACIN [Suspect]
     Active Substance: LEVOFLOXACIN
     Indication: Tuberculosis
     Dosage: DOSE: 750
     Route: 048
     Dates: start: 20211210
  4. CLOFAZIMINE [Suspect]
     Active Substance: CLOFAZIMINE
     Indication: Tuberculosis
     Dosage: DOSE: 750 MG
     Route: 048
     Dates: start: 20211210
  5. LINEZOLID [Suspect]
     Active Substance: LINEZOLID
     Indication: Tuberculosis
     Dosage: DOSE: 300
     Route: 048
     Dates: start: 20211210
  6. IRON [Concomitant]
     Active Substance: IRON
     Indication: Anaemia
     Route: 065

REACTIONS (1)
  - Death [Fatal]
